FAERS Safety Report 18642415 (Version 1)
Quarter: 2020Q4

REPORT INFORMATION
  Report Type: Spontaneous
  Country: IN (occurrence: IN)
  Receive Date: 20201221
  Receipt Date: 20201221
  Transmission Date: 20210114
  Serious: Yes (Other)
  Sender: FDA-Public Use
  Company Number: IN-CELLTRION-2020-IN-000223

PATIENT
  Age: 19 Year
  Sex: Female

DRUGS (1)
  1. RISPERIDONE (NON-SPECIFIC) [Suspect]
     Active Substance: RISPERIDONE
     Indication: SCHIZOPHRENIA
     Dosage: 2 MG DAILY

REACTIONS (2)
  - Cataract cortical [Unknown]
  - Cataract subcapsular [Unknown]
